FAERS Safety Report 7249462-5 (Version None)
Quarter: 2011Q1

REPORT INFORMATION
  Report Type: 
  Country: None (occurrence: None)
  Receive Date: 20110128
  Receipt Date: 20110126
  Transmission Date: 20110831
  Serious: Yes (Death)
  Sender: FDA-Public Use
  Company Number: PHHY2011EC06110

PATIENT
  Sex: Female

DRUGS (4)
  1. SINEMET [Concomitant]
     Dosage: UNK
  2. ASPIRIN [Concomitant]
     Dosage: UNK
  3. STALEVO 100 [Suspect]
     Indication: PARKINSON'S DISEASE
     Dosage: 200/12.5/50 MG
     Route: 048
  4. ATENOLOL [Concomitant]
     Dosage: UNK

REACTIONS (1)
  - PARKINSON'S DISEASE [None]
